FAERS Safety Report 19867097 (Version 1)
Quarter: 2021Q3

REPORT INFORMATION
  Report Type: Spontaneous
  Country: US (occurrence: US)
  Receive Date: 20210921
  Receipt Date: 20210921
  Transmission Date: 20211014
  Serious: No
  Sender: FDA-Public Use
  Company Number: US-BRAINTREE LABORATORIES, INC.-2020BTE04886

PATIENT
  Age: 55 Year
  Sex: Male
  Weight: 98.41 kg

DRUGS (1)
  1. SUPREP BOWEL PREP [Suspect]
     Active Substance: MAGNESIUM SULFATE\POTASSIUM SULFATE\SODIUM SULFATE
     Indication: COLONOSCOPY
     Dosage: 2 X 6 OZ. BOTTLE, 1X
     Route: 048
     Dates: start: 20201208, end: 20201209

REACTIONS (6)
  - Abdominal distension [Recovered/Resolved]
  - Weight increased [Recovered/Resolved]
  - Foreign body in gastrointestinal tract [Recovered/Resolved]
  - Therapeutic product effect delayed [Recovered/Resolved]
  - Fatigue [Recovered/Resolved]
  - Fluid retention [Recovered/Resolved]

NARRATIVE: CASE EVENT DATE: 202012
